FAERS Safety Report 7737921-8 (Version None)
Quarter: 2011Q3

REPORT INFORMATION
  Report Type: 
  Country: None (occurrence: None)
  Receive Date: 20110908
  Receipt Date: 20110905
  Transmission Date: 20111222
  Serious: Yes (Other)
  Sender: FDA-Public Use
  Company Number: PHHY2011DE21070

PATIENT
  Sex: Male
  Weight: 92 kg

DRUGS (8)
  1. ZOMETA [Suspect]
     Indication: PROSTATE CANCER
     Dosage: 4 MG EVERY 4 WEEKS
     Route: 042
     Dates: start: 20100415
  2. ZOMETA [Suspect]
     Indication: METASTASES TO BONE
  3. ELIGARD [Concomitant]
     Dosage: 22.5 MG, EVERY 12 WEEKS
     Route: 058
     Dates: start: 20100118
  4. ZOMETA [Suspect]
     Indication: METASTASES TO LYMPH NODES
  5. TAXOTERE [Concomitant]
     Dosage: UNK
     Dates: start: 20110101
  6. BICALUTAMIDE [Concomitant]
     Dosage: 50 MG, QD
     Route: 048
     Dates: start: 20091228
  7. VITAMIN D [Concomitant]
     Dosage: UNK
     Route: 048
     Dates: start: 20100415
  8. CALCIUM CARBONATE [Concomitant]
     Dosage: UNK
     Route: 048

REACTIONS (3)
  - TOOTH ABSCESS [None]
  - TOOTHACHE [None]
  - INFLAMMATION [None]
